FAERS Safety Report 5430665-7 (Version None)
Quarter: 2007Q3

REPORT INFORMATION
  Report Type: 
  Country: None (occurrence: None)
  Receive Date: 20070830
  Receipt Date: 20070226
  Transmission Date: 20080115
  Serious: No
  Sender: FDA-Public Use
  Company Number: US-KINGPHARMUSA00001-K200700220

PATIENT

DRUGS (4)
  1. FLORINEF [Suspect]
     Indication: POSTURAL ORTHOSTATIC TACHYCARDIA SYNDROME
     Dosage: .1 MG, QD
     Route: 048
     Dates: start: 20070101, end: 20070101
  2. FLORINEF [Suspect]
     Dosage: .2 MG, QD
     Route: 048
     Dates: start: 20070101, end: 20070101
  3. FLORINEF [Suspect]
     Dosage: .4 MG, QD
     Route: 048
     Dates: start: 20070101
  4. NADOLOL [Concomitant]
     Indication: POSTURAL ORTHOSTATIC TACHYCARDIA SYNDROME
     Dosage: 20 MG, BID
     Route: 048

REACTIONS (1)
  - DYSURIA [None]
